FAERS Safety Report 7837604-X (Version None)
Quarter: 2011Q4

REPORT INFORMATION
  Report Type: 
  Country: None (occurrence: None)
  Receive Date: 20111024
  Receipt Date: 20111014
  Transmission Date: 20120403
  Serious: Yes (Death)
  Sender: FDA-Public Use
  Company Number: PL-GLAXOSMITHKLINE-Z0008637C

PATIENT
  Sex: Male
  Weight: 111 kg

DRUGS (6)
  1. OFATUMUMAB [Suspect]
     Indication: CHRONIC LYMPHOCYTIC LEUKAEMIA
     Route: 042
     Dates: start: 20100908
  2. CYCLOPHOSPHAMIDE [Suspect]
     Indication: CHRONIC LYMPHOCYTIC LEUKAEMIA
     Route: 042
     Dates: start: 20100908
  3. ATROVENT [Concomitant]
     Indication: PNEUMONIA
     Dosage: 40DROP FOUR TIMES PER DAY
     Route: 055
     Dates: start: 20110401, end: 20110401
  4. ALBUTEROL [Concomitant]
     Indication: PNEUMONIA
     Dosage: 2.5MG FOUR TIMES PER DAY
     Route: 055
     Dates: start: 20110401, end: 20110401
  5. PULMICORT [Concomitant]
     Indication: PNEUMONIA
     Dosage: .5MG TWICE PER DAY
     Route: 055
     Dates: start: 20110401, end: 20110401
  6. FLUDARABINE PHOSPHATE [Suspect]
     Indication: CHRONIC LYMPHOCYTIC LEUKAEMIA
     Route: 042
     Dates: start: 20100908

REACTIONS (5)
  - SEPSIS [None]
  - PANCYTOPENIA [None]
  - HEPATIC FAILURE [None]
  - URINARY TRACT INFECTION [None]
  - PNEUMONIA [None]
